FAERS Safety Report 14823149 (Version 3)
Quarter: 2018Q2

REPORT INFORMATION
  Report Type: Spontaneous
  Country: US (occurrence: US)
  Receive Date: 20180427
  Receipt Date: 20180621
  Transmission Date: 20180711
  Serious: Yes (Hospitalization)
  Sender: FDA-Public Use
  Company Number: US-ACTELION-A-US2018-171277

PATIENT
  Age: 68 Year
  Sex: Female

DRUGS (21)
  1. UPTRAVI [Suspect]
     Active Substance: SELEXIPAG
     Indication: PULMONARY ARTERIAL HYPERTENSION
     Dosage: 1400 MCG, BID
     Route: 048
     Dates: start: 20170331
  2. UPTRAVI [Suspect]
     Active Substance: SELEXIPAG
     Dosage: UNK
     Route: 048
     Dates: start: 20170331
  3. ALBUTEROL. [Concomitant]
     Active Substance: ALBUTEROL
  4. ATORVASTATIN [Concomitant]
     Active Substance: ATORVASTATIN
  5. BLACK COHOSH [Concomitant]
     Active Substance: BLACK COHOSH
  6. IBUPROFEN. [Concomitant]
     Active Substance: IBUPROFEN
  7. KRILL OIL [Concomitant]
     Active Substance: DIETARY SUPPLEMENT
  8. MAGNESIUM OXIDE. [Concomitant]
     Active Substance: MAGNESIUM OXIDE
  9. CEFUROXIME. [Concomitant]
     Active Substance: CEFUROXIME
  10. COENZYME Q10 [Concomitant]
     Active Substance: UBIDECARENONE
  11. GABAPENTIN. [Concomitant]
     Active Substance: GABAPENTIN
  12. CALCIUM [Concomitant]
     Active Substance: CALCIUM
  13. CARVEDILOL. [Concomitant]
     Active Substance: CARVEDILOL
  14. CHROMIUM [Concomitant]
     Active Substance: CHROMIC CHLORIDE\CHROMIUM
  15. FLUTICASONE. [Concomitant]
     Active Substance: FLUTICASONE
  16. OPSUMIT [Suspect]
     Active Substance: MACITENTAN
     Indication: PULMONARY ARTERIAL HYPERTENSION
     Dosage: 10 MG, QD
     Route: 048
     Dates: start: 20160804
  17. ASPIRIN. [Concomitant]
     Active Substance: ASPIRIN
  18. CHOLECALCIFEROL [Concomitant]
     Active Substance: CHOLECALCIFEROL
  19. BYDUREON [Concomitant]
     Active Substance: EXENATIDE
  20. TRESIBA [Concomitant]
     Active Substance: INSULIN DEGLUDEC
  21. OMEGA 3 [Concomitant]
     Active Substance: OMEGA-3 FATTY ACIDS

REACTIONS (5)
  - Pneumonia [Recovered/Resolved with Sequelae]
  - Chest pain [Recovered/Resolved with Sequelae]
  - Blood creatinine increased [Recovering/Resolving]
  - Upper respiratory tract infection [Recovered/Resolved with Sequelae]
  - Dyspnoea [Recovered/Resolved with Sequelae]

NARRATIVE: CASE EVENT DATE: 2016
